FAERS Safety Report 7025136-0 (Version None)
Quarter: 2010Q3

REPORT INFORMATION
  Report Type: 
  Country: None (occurrence: None)
  Receive Date: 20100916
  Receipt Date: 20100709
  Transmission Date: 20110219
  Serious: Yes (Other)
  Sender: FDA-Public Use
  Company Number: DKLU1063505

PATIENT
  Age: 4 Year
  Sex: Male

DRUGS (6)
  1. SABRIL [Suspect]
     Indication: EPILEPSY
     Dosage: 250 MG MILLIGRAM(S), AM, ORAL; 500 MG MILLIGRAM(S), HS, ORAL
     Route: 048
     Dates: start: 20100513, end: 20100101
  2. SABRIL [Suspect]
     Indication: EPILEPSY
     Dosage: 250 MG MILLIGRAM(S), AM, ORAL; 500 MG MILLIGRAM(S), HS, ORAL
     Route: 048
     Dates: start: 20100513, end: 20100101
  3. MIRALAX [Concomitant]
  4. CLONAZEPAM [Concomitant]
  5. KEPPRA [Concomitant]
  6. BANZEL (RUFINAMIDE) [Concomitant]

REACTIONS (1)
  - CONVULSION [None]
